FAERS Safety Report 9922350 (Version 1)
Quarter: 2014Q1

REPORT INFORMATION
  Report Type: Spontaneous
  Country: US (occurrence: None)
  Receive Date: 20140224
  Receipt Date: 20140224
  Transmission Date: 20141002
  Serious: Yes (Other)
  Sender: FDA-Public Use
  Company Number: None

PATIENT
  Age: 26 Year
  Sex: Female
  Weight: 52.16 kg

DRUGS (1)
  1. FLUOXETINE [Suspect]
     Indication: OBSESSIVE-COMPULSIVE DISORDER
     Route: 048

REACTIONS (5)
  - Dyspepsia [None]
  - Product taste abnormal [None]
  - Abdominal discomfort [None]
  - Product taste abnormal [None]
  - Fear of disease [None]
